FAERS Safety Report 18433110 (Version 1)
Quarter: 2020Q4

REPORT INFORMATION
  Report Type: Spontaneous
  Country: CA (occurrence: CA)
  Receive Date: 20201027
  Receipt Date: 20201027
  Transmission Date: 20210114
  Serious: Yes (Other)
  Sender: FDA-Public Use
  Company Number: CA-SUNOVION-2020SUN003135

PATIENT
  Age: 53 Year
  Sex: Female

DRUGS (3)
  1. LITHIUM. [Concomitant]
     Active Substance: LITHIUM
     Dosage: UNK
  2. LATUDA [Suspect]
     Active Substance: LURASIDONE HYDROCHLORIDE
     Dosage: 20 MG (1 TABLET), QD
     Route: 048
  3. LATUDA [Suspect]
     Active Substance: LURASIDONE HYDROCHLORIDE
     Dosage: 29 TABLETS (1 TABLET 20MG) OF LOW DOSE
     Route: 048
     Dates: start: 20200814

REACTIONS (9)
  - Overdose [Unknown]
  - Therapy interrupted [Unknown]
  - Pain in extremity [Recovered/Resolved]
  - Peripheral swelling [Unknown]
  - Back pain [Unknown]
  - Decreased activity [Unknown]
  - Renal impairment [Unknown]
  - Varicose vein [Recovered/Resolved]
  - Urinary tract pain [Unknown]

NARRATIVE: CASE EVENT DATE: 20200814
